FAERS Safety Report 18434293 (Version 2)
Quarter: 2020Q4

REPORT INFORMATION
  Report Type: Spontaneous
  Country: JP (occurrence: JP)
  Receive Date: 20201028
  Receipt Date: 20201030
  Transmission Date: 20210114
  Serious: Yes (Hospitalization, Other)
  Sender: FDA-Public Use
  Company Number: JP-BRISTOL-MYERS SQUIBB COMPANY-BMS-2020-023468

PATIENT
  Age: 68 Year
  Sex: Male
  Weight: 61.6 kg

DRUGS (8)
  1. YERVOY [Suspect]
     Active Substance: IPILIMUMAB
     Indication: METASTATIC RENAL CELL CARCINOMA
     Dosage: 50 MILLIGRAM
     Route: 041
     Dates: start: 20191016, end: 20191216
  2. MAGMITT [Concomitant]
     Active Substance: MAGNESIUM OXIDE
     Indication: PRODUCT USED FOR UNKNOWN INDICATION
     Dosage: 330 MILLIGRAM
     Route: 065
  3. CONTOMIN [CHLORPROMAZINE HIBENZATE] [Concomitant]
     Active Substance: CHLORPROMAZINE HIBENZATE
     Indication: PRODUCT USED FOR UNKNOWN INDICATION
     Dosage: 25 MILLIGRAM
     Route: 065
  4. NIFEDIPINE. [Concomitant]
     Active Substance: NIFEDIPINE
     Indication: PRODUCT USED FOR UNKNOWN INDICATION
     Dosage: 40 MILLIGRAM
     Route: 048
  5. OPDIVO [Suspect]
     Active Substance: NIVOLUMAB
     Indication: METASTATIC RENAL CELL CARCINOMA
     Dosage: 240 MILLIGRAM
     Route: 041
     Dates: start: 20191016, end: 20191216
  6. TELMISARTAN. [Suspect]
     Active Substance: TELMISARTAN
     Indication: PRODUCT USED FOR UNKNOWN INDICATION
     Dosage: 40 NANOGRAM
     Route: 048
     Dates: end: 20200218
  7. MIYA-BM [Concomitant]
     Active Substance: CLOSTRIDIUM BUTYRICUM SPORES STRAIN M-55
     Indication: PRODUCT USED FOR UNKNOWN INDICATION
     Dosage: UNK
     Route: 065
  8. CALONAL [Concomitant]
     Active Substance: ACETAMINOPHEN
     Indication: PRODUCT USED FOR UNKNOWN INDICATION
     Dosage: 200 MILLIGRAM
     Route: 065

REACTIONS (7)
  - Intentional product use issue [Unknown]
  - Acute kidney injury [Recovered/Resolved]
  - Renal failure [Unknown]
  - Hyponatraemia [Unknown]
  - Enterocolitis [Unknown]
  - Hyperkalaemia [Unknown]
  - Secondary adrenocortical insufficiency [Recovering/Resolving]

NARRATIVE: CASE EVENT DATE: 20200218
